FAERS Safety Report 6392093-X (Version None)
Quarter: 2009Q4

REPORT INFORMATION
  Report Type: 
  Country: None (occurrence: None)
  Receive Date: 20091007
  Receipt Date: 20091001
  Transmission Date: 20100525
  Serious: Yes (Hospitalization)
  Sender: FDA-Public Use
  Company Number: US-MERCK-0910USA00123

PATIENT

DRUGS (2)
  1. JANUVIA [Suspect]
     Indication: BLOOD GLUCOSE
     Route: 048
     Dates: start: 20090101, end: 20090801
  2. HYDROCHLOROTHIAZIDE [Concomitant]
     Indication: BLOOD PRESSURE
     Route: 048
     Dates: end: 20090801

REACTIONS (5)
  - DIARRHOEA [None]
  - RASH GENERALISED [None]
  - THROAT TIGHTNESS [None]
  - TONGUE OEDEMA [None]
  - VOMITING [None]
